FAERS Safety Report 8424577-4 (Version None)
Quarter: 2012Q2

REPORT INFORMATION
  Report Type: 
  Country: None (occurrence: None)
  Receive Date: 20120611
  Receipt Date: 20120529
  Transmission Date: 20120825
  Serious: Yes (Hospitalization)
  Sender: FDA-Public Use
  Company Number: US-ASTRAZENECA-2011SE32236

PATIENT
  Age: 49 Year
  Sex: Female

DRUGS (30)
  1. NEXIUM [Suspect]
     Dosage: EVERY DAY
     Route: 048
     Dates: start: 20030101
  2. HYDROCODONE BITARTRATE [Concomitant]
     Indication: PAIN
     Dosage: AS NEEDED
  3. ZOLPIDEM [Concomitant]
     Dates: start: 20100309
  4. METOPROLOL [Concomitant]
     Route: 048
     Dates: start: 20100211
  5. METHOCARBAMOL [Concomitant]
     Route: 048
     Dates: start: 20100211
  6. SIMVASTATIN [Concomitant]
     Dosage: 10/20MG ONE TABLET PO DAILY
     Route: 048
     Dates: start: 20100211
  7. NITRIPTYLINE [Concomitant]
     Dates: start: 20100211
  8. CYCLOBENZAPRINE [Concomitant]
     Route: 048
     Dates: start: 20090930
  9. NEXIUM [Suspect]
     Route: 048
     Dates: start: 20091019
  10. NEXIUM [Suspect]
     Route: 048
     Dates: start: 20100226
  11. HYDROCODONE BITARTRATE [Concomitant]
     Dates: start: 20100323
  12. NEURONTIN [Concomitant]
     Route: 048
     Dates: start: 20100211
  13. OMEPRAZOLE CR [Concomitant]
     Dates: start: 20010101, end: 20110101
  14. HYDROCHLOROTHIAZDE TAB [Concomitant]
     Route: 048
     Dates: start: 20100211
  15. ZOLPIDEM [Concomitant]
     Indication: SLEEP DISORDER
  16. HYDROCO/ACETAMIN [Concomitant]
     Dosage: ONE OR TWO TAB PO DAILY
     Route: 048
     Dates: start: 20100211
  17. NEXIUM [Suspect]
     Route: 048
     Dates: start: 20100211
  18. EXFORGE [Concomitant]
     Dosage: 5/320 ONE TAB PO DAILY
     Route: 048
     Dates: start: 20100211
  19. HYDROCO/ACETAMIN [Concomitant]
     Dosage: 10-325 MG
     Route: 048
     Dates: start: 20100325
  20. NITROGLYCERIN [Concomitant]
     Dosage: 0.2MG PER HOUR PATCHES
     Dates: start: 20091001
  21. PREVACID [Concomitant]
     Route: 048
     Dates: start: 20091017
  22. HYDROCODONE BITARTRATE [Concomitant]
     Dosage: 10/325 MG ONE TA PO DAILY
     Route: 048
     Dates: start: 20100211
  23. PHENERGAN [Concomitant]
     Route: 048
     Dates: start: 20100211
  24. NEXIUM [Suspect]
     Indication: GASTROOESOPHAGEAL REFLUX DISEASE
     Route: 048
     Dates: start: 20010101, end: 20110101
  25. HYDROCO/ACETAMIN [Concomitant]
     Indication: BACK PAIN
     Dosage: 10MG/325MG TO BE TAKEN EVERY 12 HOURS
     Route: 048
     Dates: start: 20091006
  26. CRESTOR [Concomitant]
     Indication: BLOOD CHOLESTEROL INCREASED
  27. HYDROCHLOROTHIAZDE TAB [Concomitant]
     Indication: HYPERTENSION
  28. AMITRIPTLINE HYDROCHLORIDE TAB [Concomitant]
     Indication: DEPRESSION
  29. METOPROLOL [Concomitant]
     Route: 048
     Dates: start: 20100325
  30. NEURONTIN [Concomitant]
     Route: 048
     Dates: start: 20091002

REACTIONS (7)
  - SCIATIC NERVE INJURY [None]
  - DEPRESSION [None]
  - ARTHRITIS [None]
  - ANKLE FRACTURE [None]
  - WALKING AID USER [None]
  - GLAUCOMA [None]
  - OSTEOPOROSIS [None]
